FAERS Safety Report 15403257 (Version 2)
Quarter: 2018Q4

REPORT INFORMATION
  Report Type: Spontaneous
  Country: US (occurrence: US)
  Receive Date: 20180919
  Receipt Date: 20181208
  Transmission Date: 20190204
  Serious: Yes (Hospitalization)
  Sender: FDA-Public Use
  Company Number: US-JNJFOC-20180904803

PATIENT
  Age: 86 Year
  Sex: Female

DRUGS (1)
  1. XARELTO [Suspect]
     Active Substance: RIVAROXABAN
     Indication: EMBOLISM VENOUS
     Route: 048
     Dates: start: 20140508, end: 20161017

REACTIONS (5)
  - Gastrointestinal haemorrhage [Unknown]
  - Renal haematoma [Unknown]
  - Retroperitoneal haemorrhage [Unknown]
  - Vaginal haemorrhage [Unknown]
  - Coagulopathy [Unknown]

NARRATIVE: CASE EVENT DATE: 201610
